FAERS Safety Report 7095479-3 (Version None)
Quarter: 2010Q4

REPORT INFORMATION
  Report Type: 
  Country: None (occurrence: None)
  Receive Date: 20101111
  Receipt Date: 20100813
  Transmission Date: 20110411
  Serious: Yes (Death)
  Sender: FDA-Public Use
  Company Number: BR-ACTELION-A-CH2010-36559

PATIENT

DRUGS (2)
  1. BOSENTAN TABLET 125 MG ROW [Suspect]
     Indication: PULMONARY HYPERTENSION
     Dosage: 125 MG, BID
     Route: 048
  2. BOSENTAN TABLET 125 MG ROW [Suspect]
     Dosage: 62.5 MG, BID
     Route: 048

REACTIONS (1)
  - DEATH [None]
